FAERS Safety Report 24987512 (Version 2)
Quarter: 2025Q1

REPORT INFORMATION
  Report Type: Spontaneous
  Country: JP (occurrence: JP)
  Receive Date: 20250219
  Receipt Date: 20250306
  Transmission Date: 20250408
  Serious: Yes (Death)
  Sender: ELI LILLY AND COMPANY
  Company Number: JP-ELI_LILLY_AND_COMPANY-JP202502013149

PATIENT
  Age: 65 Year

DRUGS (3)
  1. NECITUMUMAB [Suspect]
     Active Substance: NECITUMUMAB
     Indication: Product used for unknown indication
     Route: 042
     Dates: start: 2024
  2. GEMCITABINE HYDROCHLORIDE [Concomitant]
     Active Substance: GEMCITABINE HYDROCHLORIDE
     Route: 042
     Dates: start: 2024
  3. CISPLATIN [Concomitant]
     Active Substance: CISPLATIN
     Route: 042
     Dates: start: 2024

REACTIONS (2)
  - Malignant neoplasm progression [Fatal]
  - Performance status decreased [Unknown]
